FAERS Safety Report 9054895 (Version 3)
Quarter: 2013Q1

REPORT INFORMATION
  Report Type: Spontaneous
  Country: JP (occurrence: JP)
  Receive Date: 20130208
  Receipt Date: 20130311
  Transmission Date: 20140127
  Serious: Yes (Other)
  Sender: FDA-Public Use
  Company Number: JP-JNJFOC-20130116709

PATIENT
  Age: 83 Year
  Sex: Male

DRUGS (6)
  1. RISPERDAL [Suspect]
     Indication: DELIRIUM
     Route: 048
     Dates: start: 20130124
  2. RISPERDAL [Suspect]
     Indication: DELIRIUM
     Route: 048
     Dates: start: 201301, end: 20130124
  3. DEPAS [Concomitant]
     Route: 048
     Dates: start: 20130114
  4. DORMICUM [Concomitant]
     Route: 042
     Dates: start: 20130114, end: 20130127
  5. MORPHINE HYDROCHLORIDE [Concomitant]
     Route: 042
     Dates: start: 20130115, end: 20130125
  6. VOLTAREN [Concomitant]
     Route: 065
     Dates: start: 20130125

REACTIONS (4)
  - Blood pressure systolic decreased [Recovered/Resolved]
  - Urine output decreased [Recovering/Resolving]
  - Drug ineffective [Unknown]
  - Pyrexia [Recovered/Resolved]
